FAERS Safety Report 10313875 (Version 2)
Quarter: 2014Q3

REPORT INFORMATION
  Report Type: Spontaneous
  Country: US (occurrence: US)
  Receive Date: 20140718
  Receipt Date: 20140811
  Transmission Date: 20150326
  Serious: Yes (Congenital Anomaly)
  Sender: FDA-Public Use
  Company Number: US-009507513-1407USA007772

PATIENT
  Age: 1 Day
  Sex: Male
  Weight: 3.06 kg

DRUGS (6)
  1. ISENTRESS [Suspect]
     Active Substance: RALTEGRAVIR POTASSIUM
     Dosage: TOTAL DAILY DOSE 800 MG/DAY
     Route: 064
     Dates: start: 20130725, end: 20131030
  2. COMBIVIR [Suspect]
     Active Substance: LAMIVUDINE\ZIDOVUDINE
     Dosage: TOTAL DAILY DOSE :2 TAB/CAPS
     Route: 064
     Dates: end: 20130725
  3. RETROVIR [Suspect]
     Active Substance: ZIDOVUDINE
     Dosage: TOTAL DAILY DOSE: 1MG/KG/HR
     Route: 064
     Dates: start: 20131030, end: 20131030
  4. RETROVIR [Suspect]
     Active Substance: ZIDOVUDINE
     Dosage: TOTAL DAILY DOSE: 2 MG/KG/HR
     Route: 064
     Dates: start: 20131029, end: 20131030
  5. KALETRA [Suspect]
     Active Substance: LOPINAVIR\RITONAVIR
     Dosage: TOTAL DAILY DOSE: 4 TAB/CAPS
     Route: 064
     Dates: end: 20130725
  6. TRUVADA [Suspect]
     Active Substance: EMTRICITABINE\TENOFOVIR DISOPROXIL FUMARATE
     Dosage: TOTAL DAILY DOSE: 1 TAB/CAPS
     Route: 064
     Dates: start: 20130725, end: 20131030

REACTIONS (2)
  - Cephalhaematoma [Unknown]
  - Foetal exposure during pregnancy [Unknown]

NARRATIVE: CASE EVENT DATE: 20130221
